FAERS Safety Report 7769431-6 (Version None)
Quarter: 2011Q3

REPORT INFORMATION
  Report Type: 
  Country: None (occurrence: None)
  Receive Date: 20110922
  Receipt Date: 20100826
  Transmission Date: 20111222
  Serious: No
  Sender: FDA-Public Use
  Company Number: US-ASTRAZENECA-2010SE40357

PATIENT
  Sex: Female

DRUGS (12)
  1. SEROQUEL [Suspect]
     Indication: BIPOLAR DISORDER
     Route: 048
     Dates: start: 20020101, end: 20080101
  2. SEROQUEL [Suspect]
     Indication: ANXIETY DISORDER
     Route: 048
     Dates: start: 20020101, end: 20080101
  3. LITHIUM CARBONATE [Concomitant]
     Indication: OBSESSIVE-COMPULSIVE DISORDER
  4. LITHIUM CARBONATE [Concomitant]
     Indication: ANXIETY
  5. XAXEX [Concomitant]
     Indication: ANXIETY
  6. CELEXA [Concomitant]
     Indication: OBSESSIVE-COMPULSIVE DISORDER
  7. XAXEX [Concomitant]
     Indication: OBSESSIVE-COMPULSIVE DISORDER
  8. CELEXA [Concomitant]
     Indication: ANXIETY
  9. XAXEX [Concomitant]
     Indication: BIPOLAR DISORDER
  10. SEROQUEL [Suspect]
     Indication: OBSESSIVE-COMPULSIVE DISORDER
     Route: 048
     Dates: start: 20020101, end: 20080101
  11. LITHIUM CARBONATE [Concomitant]
     Indication: BIPOLAR DISORDER
  12. CELEXA [Concomitant]
     Indication: BIPOLAR DISORDER

REACTIONS (3)
  - MATERNAL EXPOSURE DURING PREGNANCY [None]
  - GESTATIONAL DIABETES [None]
  - TYPE 2 DIABETES MELLITUS [None]
